FAERS Safety Report 14593153 (Version 1)
Quarter: 2018Q1

REPORT INFORMATION
  Report Type: Spontaneous
  Country: US (occurrence: US)
  Receive Date: 20180302
  Receipt Date: 20180302
  Transmission Date: 20180509
  Serious: No
  Sender: FDA-Public Use
  Company Number: None

PATIENT
  Age: 64 Year
  Sex: Female

DRUGS (14)
  1. GABAPENTIN 100MG CAPSULES [Suspect]
     Active Substance: GABAPENTIN
     Indication: PRURITUS
     Dates: start: 20171208
  2. VITAMIN D [Concomitant]
     Active Substance: CHOLECALCIFEROL
  3. VITAMIN K [Concomitant]
     Active Substance: PHYTONADIONE
  4. GABAPENTIN 100MG CAPSULES [Suspect]
     Active Substance: GABAPENTIN
     Indication: SKIN DISORDER
     Dates: start: 20171208
  5. MARY KAY MOISTURIZER [Concomitant]
  6. BENADRYL [Concomitant]
     Active Substance: DIPHENHYDRAMINE HYDROCHLORIDE
  7. PREDNISONE. [Concomitant]
     Active Substance: PREDNISONE
  8. SYSTANE ULTRA [Concomitant]
     Active Substance: POLYETHYLENE GLYCOL 400\PROPYLENE GLYCOL
  9. SHAMPOO - PAUL MITCHELL [Concomitant]
  10. GABAPENTIN 100MG CAPSULES [Suspect]
     Active Substance: GABAPENTIN
     Indication: MUSCLE TWITCHING
     Dates: start: 20171208
  11. GABAPENTIN 100MG CAPSULES [Suspect]
     Active Substance: GABAPENTIN
     Indication: SKIN ULCER
     Dates: start: 20171208
  12. BODY MOSITURIZER - NIVEA [Concomitant]
  13. DEXILANT [Concomitant]
     Active Substance: DEXLANSOPRAZOLE
  14. CALCIUM SOFT CHEWS [Concomitant]

REACTIONS (18)
  - Nausea [None]
  - Blepharospasm [None]
  - Dizziness [None]
  - Pain in extremity [None]
  - Pyrexia [None]
  - Chest discomfort [None]
  - Diarrhoea [None]
  - Eye pain [None]
  - Lymphadenopathy [None]
  - Hyperhidrosis [None]
  - Drug hypersensitivity [None]
  - Abdominal distension [None]
  - Myalgia [None]
  - Arthralgia [None]
  - Vision blurred [None]
  - Tremor [None]
  - Abdominal pain upper [None]
  - Gait disturbance [None]

NARRATIVE: CASE EVENT DATE: 20171208
